FAERS Safety Report 23995580 (Version 3)
Quarter: 2024Q2

REPORT INFORMATION
  Report Type: Spontaneous
  Country: HU (occurrence: HU)
  Receive Date: 20240620
  Receipt Date: 20240628
  Transmission Date: 20240715
  Serious: Yes (Death, Hospitalization, Other)
  Sender: FDA-Public Use
  Company Number: HU-002147023-NVSC2024HU128098

PATIENT
  Sex: Male
  Weight: 83 kg

DRUGS (19)
  1. EVEROLIMUS [Interacting]
     Active Substance: EVEROLIMUS
     Indication: Immunosuppression
     Dosage: 0.5 MG, BID
     Route: 050
  2. EVEROLIMUS [Interacting]
     Active Substance: EVEROLIMUS
     Dosage: 0.25 MG, BID
     Route: 050
  3. EVEROLIMUS [Interacting]
     Active Substance: EVEROLIMUS
     Dosage: 0.25 MG, QD
     Route: 050
  4. EVEROLIMUS [Interacting]
     Active Substance: EVEROLIMUS
     Dosage: 0.25 MG, BID
     Route: 050
  5. EVEROLIMUS [Interacting]
     Active Substance: EVEROLIMUS
     Dosage: 0.25 MG, QD
     Route: 050
  6. EVEROLIMUS [Interacting]
     Active Substance: EVEROLIMUS
     Dosage: 0.25 MG, BID
     Route: 050
  7. EVEROLIMUS [Interacting]
     Active Substance: EVEROLIMUS
     Dosage: 0.25 MG, QD
     Route: 050
  8. METHYLPREDNISOLONE [Suspect]
     Active Substance: METHYLPREDNISOLONE
     Indication: Immunosuppression
     Dosage: 28 MG, ENTERALLY
     Route: 050
  9. METHYLPREDNISOLONE [Suspect]
     Active Substance: METHYLPREDNISOLONE
     Dosage: 16 MG, ENTERALLY
     Route: 050
  10. METHYLPREDNISOLONE [Suspect]
     Active Substance: METHYLPREDNISOLONE
     Dosage: 100 MG, BID
     Route: 065
  11. TICAGRELOR [Interacting]
     Active Substance: TICAGRELOR
     Indication: Vascular stent thrombosis
     Dosage: 90 MG, BID, ENTERALLY
     Route: 050
  12. HYDROCORTISONE [Concomitant]
     Active Substance: HYDROCORTISONE\HYDROCORTISONE ACETATE
     Indication: Product used for unknown indication
     Dosage: UNK
     Route: 042
  13. CLOPIDOGREL [Concomitant]
     Active Substance: CLOPIDOGREL BISULFATE
     Indication: Product used for unknown indication
     Dosage: 75 MG, QD, ENTERALLY
     Route: 050
  14. TIGECYCLINE [Concomitant]
     Active Substance: TIGECYCLINE
     Indication: Stenotrophomonas infection
     Dosage: 50 MG, BID
     Route: 042
  15. TIGECYCLINE [Concomitant]
     Active Substance: TIGECYCLINE
     Dosage: 50 MG, BID
     Route: 042
  16. TIGECYCLINE [Concomitant]
     Active Substance: TIGECYCLINE
     Dosage: 50 MG, QD
     Route: 042
  17. MEROPENEM [Concomitant]
     Active Substance: MEROPENEM
     Indication: Product used for unknown indication
     Dosage: 500 MG, TID
     Route: 042
  18. MEROPENEM [Concomitant]
     Active Substance: MEROPENEM
     Dosage: 500 MG, BID
     Route: 042
  19. ACYCLOVIR [Concomitant]
     Active Substance: ACYCLOVIR
     Indication: Product used for unknown indication
     Dosage: 200 MG, 4 DAYS ENTERALLY
     Route: 050

REACTIONS (2)
  - Haemorrhagic pneumonia [Fatal]
  - Drug interaction [Unknown]
